FAERS Safety Report 7244837-2 (Version None)
Quarter: 2011Q1

REPORT INFORMATION
  Report Type: 
  Country: None (occurrence: None)
  Receive Date: 20110126
  Receipt Date: 20110120
  Transmission Date: 20110831
  Serious: No
  Sender: FDA-Public Use
  Company Number: US-PFIZER INC-US-WYE-H14780310

PATIENT
  Age: 46 Year
  Sex: Female

DRUGS (2)
  1. EFFEXOR [Suspect]
     Dosage: UNKNOWN DOSE, WAS JUST INCREASED
     Route: 065
  2. GEODON [Suspect]
     Dosage: UNKNOWN DOSE, DOSE WAS JSUT INCREASED
     Route: 065

REACTIONS (1)
  - RASH [None]
